FAERS Safety Report 16862214 (Version 1)
Quarter: 2019Q3

REPORT INFORMATION
  Report Type: Spontaneous
  Country: JP (occurrence: JP)
  Receive Date: 20190927
  Receipt Date: 20190927
  Transmission Date: 20191005
  Serious: Yes (Other)
  Sender: FDA-Public Use
  Company Number: JP-ASTRAZENECA-2019SF36021

PATIENT
  Age: 62 Year
  Sex: Male
  Weight: 42 kg

DRUGS (3)
  1. REBAMIPIDE [Concomitant]
     Active Substance: REBAMIPIDE
     Dosage: DOSE UNKNOWN
     Route: 048
     Dates: start: 20190710
  2. LOXOPROFEN [Concomitant]
     Active Substance: LOXOPROFEN
     Dosage: DOSE UNKNOWN
     Route: 048
     Dates: start: 20190706
  3. IMFINZI [Suspect]
     Active Substance: DURVALUMAB
     Indication: NON-SMALL CELL LUNG CANCER
     Route: 042
     Dates: start: 20190321, end: 20190807

REACTIONS (1)
  - Meningitis tuberculous [Recovering/Resolving]

NARRATIVE: CASE EVENT DATE: 20190826
